FAERS Safety Report 13009151 (Version 3)
Quarter: 2017Q1

REPORT INFORMATION
  Report Type: Spontaneous
  Country: FR (occurrence: FR)
  Receive Date: 20161208
  Receipt Date: 20170215
  Transmission Date: 20170428
  Serious: Yes (Disabling)
  Sender: FDA-Public Use
  Company Number: FR-GILEAD-2016-0247448

PATIENT
  Age: 69 Year
  Sex: Male
  Weight: 86 kg

DRUGS (8)
  1. KOMBOGLYZE [Concomitant]
     Active Substance: METFORMIN HYDROCHLORIDE\SAXAGLIPTIN
     Indication: TYPE 1 DIABETES MELLITUS
     Dosage: 1 DF, UNK
     Route: 048
     Dates: start: 201309
  2. TEVETEN [Concomitant]
     Active Substance: EPROSARTAN MESYLATE
     Indication: HYPERTENSION
     Dosage: 2 DF, UNK
     Route: 048
     Dates: start: 200701
  3. ESIDREX [Concomitant]
     Active Substance: HYDROCHLOROTHIAZIDE
     Indication: HYPERTENSION
     Dosage: 1 DF, UNK
     Route: 048
     Dates: start: 200701
  4. LANTUS [Concomitant]
     Active Substance: INSULIN GLARGINE
     Indication: TYPE 1 DIABETES MELLITUS
     Dosage: 26 IU
     Route: 058
     Dates: start: 200409
  5. LYRICA [Concomitant]
     Active Substance: PREGABALIN
     Indication: PAIN IN EXTREMITY
     Dosage: 25 MG, BID
     Route: 048
  6. VIREAD [Suspect]
     Active Substance: TENOFOVIR DISOPROXIL FUMARATE
     Indication: HEPATITIS B
     Dosage: 245 UNK, UNK
     Route: 048
     Dates: start: 201508
  7. AMAREL [Concomitant]
     Active Substance: GLIMEPIRIDE
     Indication: TYPE 1 DIABETES MELLITUS
     Dosage: 4 MG, UNK
     Route: 048
     Dates: start: 200409
  8. LOXEN                              /00639802/ [Concomitant]
     Active Substance: NICARDIPINE
     Indication: HYPERTENSION
     Dosage: 2 DF, UNK
     Route: 048
     Dates: start: 200701

REACTIONS (2)
  - Bone disorder [Unknown]
  - Abasia [Unknown]

NARRATIVE: CASE EVENT DATE: 201606
